FAERS Safety Report 15736949 (Version 1)
Quarter: 2018Q4

REPORT INFORMATION
  Report Type: Spontaneous
  Country: US (occurrence: US)
  Receive Date: 20181204
  Receipt Date: 20181204
  Transmission Date: 20190205
  Serious: Yes (Hospitalization)
  Sender: FDA-Public Use
  Company Number: None

PATIENT
  Sex: Male

DRUGS (12)
  1. TASIGNA [Concomitant]
     Active Substance: NILOTINIB
  2. TIMOLOL MAL SOL 0.5% OP [Concomitant]
     Dates: start: 20181025
  3. LISINOPRIL TAB 20MG [Concomitant]
     Active Substance: LISINOPRIL
     Dates: start: 20181004
  4. COMBIGAN SOL 0.2/0.5% OP [Concomitant]
     Dates: start: 20181201
  5. POT CHLORIDE TAB 20MEQ ER [Concomitant]
     Dates: start: 20181112
  6. ATORVASTATIN TAB 80MG [Concomitant]
     Dates: start: 20180925
  7. TIMOLOL MAL SOL 0.5% OP [Concomitant]
     Dates: start: 20181120
  8. BRIMONIDINE SOL 0.2% OP [Concomitant]
     Dates: start: 20181025
  9. AMLODIPINE TAB 10MG [Concomitant]
     Dates: start: 20181004
  10. SPRYCEL [Suspect]
     Active Substance: DASATINIB
     Indication: NEOPLASM MALIGNANT
     Route: 048
  11. BRIMONIDINE SOL 0.2% OP [Concomitant]
     Dates: start: 20181122
  12. POT CL MICRO TAB 20MEQ ER [Concomitant]
     Dates: start: 20181002

REACTIONS (1)
  - Coma [None]
